FAERS Safety Report 9339908 (Version 3)
Quarter: 2013Q3

REPORT INFORMATION
  Report Type: Spontaneous
  Country: US (occurrence: US)
  Receive Date: 20130610
  Receipt Date: 20130708
  Transmission Date: 20140515
  Serious: No
  Sender: FDA-Public Use
  Company Number: US-PFIZER INC-2013172121

PATIENT
  Age: 77 Year
  Sex: Female
  Weight: 45.81 kg

DRUGS (5)
  1. ESTRING [Suspect]
     Indication: ATROPHIC VULVOVAGINITIS
     Dosage: UNK
     Route: 067
     Dates: start: 201302
  2. ESTRING [Suspect]
     Indication: VAGINAL PROLAPSE
  3. CARVEDILOL [Concomitant]
     Dosage: UNK
  4. LISINOPRIL [Concomitant]
     Dosage: UNK
  5. SIMVASTATIN [Concomitant]
     Dosage: UNK

REACTIONS (3)
  - Vaginal discharge [Unknown]
  - Excessive granulation tissue [Unknown]
  - Vaginal ulceration [Unknown]
